FAERS Safety Report 7865285-8 (Version None)
Quarter: 2011Q4

REPORT INFORMATION
  Report Type: 
  Country: None (occurrence: None)
  Receive Date: 20111028
  Receipt Date: 20101116
  Transmission Date: 20120403
  Serious: No
  Sender: FDA-Public Use
  Company Number: US-GLAXOSMITHKLINE-A0892849A

PATIENT
  Age: 70 Year
  Sex: Male

DRUGS (15)
  1. ADVAIR DISKUS 100/50 [Suspect]
     Indication: CHRONIC OBSTRUCTIVE PULMONARY DISEASE
     Dosage: 1PUFF TWICE PER DAY
     Route: 055
     Dates: start: 20050101
  2. XANAX [Concomitant]
  3. VITAMIN B-12 [Concomitant]
  4. METOPROLOL TARTRATE [Concomitant]
  5. VENTOLIN HFA [Concomitant]
  6. LISINOPRIL [Concomitant]
  7. OXYGEN [Concomitant]
  8. IRON [Concomitant]
  9. SIMVASTATIN [Concomitant]
  10. TYLENOL-500 [Concomitant]
  11. OMEPRAZOLE [Concomitant]
  12. SPIRIVA [Concomitant]
  13. ISOSORBID MONONITRATE [Concomitant]
  14. ASPIRIN [Concomitant]
  15. MAGNESIUM [Concomitant]

REACTIONS (2)
  - PRODUCT QUALITY ISSUE [None]
  - DYSPNOEA [None]
